FAERS Safety Report 5729030-4 (Version None)
Quarter: 2008Q2

REPORT INFORMATION
  Report Type: 
  Country: None (occurrence: None)
  Receive Date: 20080505
  Receipt Date: 20080505
  Transmission Date: 20081010
  Serious: Yes (Other)
  Sender: FDA-Public Use
  Company Number: None

PATIENT
  Sex: Female

DRUGS (1)
  1. PHENTERMINE [Suspect]
     Indication: LIP SWELLING

REACTIONS (3)
  - ANGIOEDEMA [None]
  - DRUG EFFECT DECREASED [None]
  - LIP SWELLING [None]
